FAERS Safety Report 22054848 (Version 2)
Quarter: 2023Q1

REPORT INFORMATION
  Report Type: Spontaneous
  Country: US (occurrence: US)
  Receive Date: 20230302
  Receipt Date: 20230314
  Transmission Date: 20230418
  Serious: Yes (Other)
  Sender: FDA-Public Use
  Company Number: US-TEVA-2023-US-2859585

PATIENT
  Age: 22 Year
  Sex: Male

DRUGS (4)
  1. ETOPOSIDE [Suspect]
     Active Substance: ETOPOSIDE
     Indication: Testicular cancer metastatic
     Dosage: VIP REGIMEN
     Route: 065
  2. IFOSFAMIDE [Suspect]
     Active Substance: IFOSFAMIDE
     Indication: Testicular cancer metastatic
     Dosage: INITIALLY ADMINISTERED AS A PART OF VIP REGIMEN AND LATER AS A PART OF VEIP REGIMEN
     Route: 065
  3. CISPLATIN [Suspect]
     Active Substance: CISPLATIN
     Indication: Testicular cancer metastatic
     Dosage: INITIALLY ADMINISTERED AS A PART OF VIP REGIMEN AND LATER AS A PART OF VEIP REGIMEN
     Route: 065
  4. VINBLASTINE [Suspect]
     Active Substance: VINBLASTINE
     Indication: Testicular cancer metastatic
     Dosage: VEIP REGIMEN
     Route: 065

REACTIONS (3)
  - Nephropathy toxic [Unknown]
  - Neutropenia [Unknown]
  - Drug ineffective [Unknown]
